FAERS Safety Report 7498151-0 (Version None)
Quarter: 2011Q2

REPORT INFORMATION
  Report Type: 
  Country: None (occurrence: None)
  Receive Date: 20110524
  Receipt Date: 20110513
  Transmission Date: 20111010
  Serious: No
  Sender: FDA-Public Use
  Company Number: US-BIOGENIDEC-2011BI018479

PATIENT
  Age: 36 Year
  Sex: Male

DRUGS (4)
  1. REBIF [Concomitant]
     Dates: start: 20100301, end: 20110301
  2. TYSABRI [Suspect]
     Indication: MULTIPLE SCLEROSIS
     Route: 042
     Dates: start: 20110311
  3. TYSABRI [Suspect]
     Route: 042
     Dates: start: 20070205, end: 20100106
  4. AVONEX [Concomitant]
     Indication: MULTIPLE SCLEROSIS
     Route: 030
     Dates: start: 20020201

REACTIONS (3)
  - VISUAL IMPAIRMENT [None]
  - DEPRESSION [None]
  - FATIGUE [None]
